FAERS Safety Report 7559142-4 (Version None)
Quarter: 2011Q2

REPORT INFORMATION
  Report Type: 
  Country: None (occurrence: None)
  Receive Date: 20110613
  Receipt Date: 20110602
  Transmission Date: 20111010
  Serious: Yes (Hospitalization, Other)
  Sender: FDA-Public Use
  Company Number: 2011P1006571

PATIENT
  Age: 88 Year
  Sex: Female
  Weight: 49.8957 kg

DRUGS (10)
  1. WARFARIN SODIUM [Suspect]
     Indication: ATRIAL FIBRILLATION
     Dosage: 7.5 MG;QD;PO 2.5 MG;QD;PO 5 MG;QD (3X/WEEK);PO 7.5 MG;QD (4X/WEEK);PO
     Route: 048
     Dates: start: 20110520
  2. WARFARIN SODIUM [Suspect]
     Indication: ATRIAL FIBRILLATION
     Dosage: 7.5 MG;QD;PO 2.5 MG;QD;PO 5 MG;QD (3X/WEEK);PO 7.5 MG;QD (4X/WEEK);PO
     Route: 048
     Dates: start: 20110520
  3. WARFARIN SODIUM [Suspect]
     Indication: ATRIAL FIBRILLATION
     Dosage: 7.5 MG;QD;PO 2.5 MG;QD;PO 5 MG;QD (3X/WEEK);PO 7.5 MG;QD (4X/WEEK);PO
     Route: 048
     Dates: start: 20110501, end: 20110519
  4. WARFARIN SODIUM [Suspect]
     Indication: ATRIAL FIBRILLATION
     Dosage: 7.5 MG;QD;PO 2.5 MG;QD;PO 5 MG;QD (3X/WEEK);PO 7.5 MG;QD (4X/WEEK);PO
     Route: 048
     Dates: start: 20110421, end: 20110512
  5. DIGOXIN [Concomitant]
  6. OMEPRAZOLE [Concomitant]
  7. ATENOLOL [Concomitant]
  8. POTASSIUM [Concomitant]
  9. FUROSEMIDE [Concomitant]
  10. DILTIAZEM [Concomitant]

REACTIONS (7)
  - INTERNATIONAL NORMALISED RATIO INCREASED [None]
  - SENSATION OF PRESSURE [None]
  - CYSTITIS [None]
  - GAIT DISTURBANCE [None]
  - BLOOD URINE PRESENT [None]
  - CONTUSION [None]
  - ANAEMIA [None]
